FAERS Safety Report 24881904 (Version 2)
Quarter: 2025Q1

REPORT INFORMATION
  Report Type: Report from Study
  Country: US (occurrence: US)
  Receive Date: 20250124
  Receipt Date: 20250225
  Transmission Date: 20250408
  Serious: No
  Sender: BridgeBio Pharma
  Company Number: US-BRIDGEBIO-24US000006

PATIENT
  Age: 89 Year
  Sex: Male

DRUGS (2)
  1. ACORAMIDIS [Suspect]
     Active Substance: ACORAMIDIS
     Indication: Amyloidosis
     Dosage: UNK, BID
     Route: 065
     Dates: start: 20241219
  2. ACORAMIDIS [Suspect]
     Active Substance: ACORAMIDIS
     Dosage: 2 DOSAGE FORM, BID
     Route: 048
     Dates: start: 20250115

REACTIONS (5)
  - Dyspepsia [Recovered/Resolved]
  - Chest pain [Recovered/Resolved]
  - Dysphagia [Recovered/Resolved]
  - Dyspnoea [Unknown]
  - Intentional dose omission [Unknown]

NARRATIVE: CASE EVENT DATE: 20241220
